FAERS Safety Report 8975633 (Version 2)
Quarter: 2013Q1

REPORT INFORMATION
  Report Type: Spontaneous
  Country: GB (occurrence: GB)
  Receive Date: 20121219
  Receipt Date: 20130131
  Transmission Date: 20140127
  Serious: Yes (Other)
  Sender: FDA-Public Use
  Company Number: GB-ROCHE-1171031

PATIENT
  Age: 54 Year
  Sex: Male
  Weight: 72.5 kg

DRUGS (5)
  1. ROACTEMRA [Suspect]
     Indication: RHEUMATOID ARTHRITIS
     Dosage: THIRD INFUSION
     Route: 042
     Dates: start: 20120907, end: 20121205
  2. OMEPRAZOLE [Concomitant]
     Indication: DYSPEPSIA
     Route: 048
  3. DIAZEPAM [Concomitant]
     Indication: ANXIETY
     Route: 048
  4. FOLIC ACID [Concomitant]
     Indication: MALNUTRITION
     Route: 048
  5. METHOTREXATE [Concomitant]
     Indication: RHEUMATOID ARTHRITIS
     Route: 048

REACTIONS (1)
  - Pulmonary haemorrhage [Recovered/Resolved]
